FAERS Safety Report 6469484-1 (Version None)
Quarter: 2009Q4

REPORT INFORMATION
  Report Type: 
  Country: None (occurrence: None)
  Receive Date: 20091203
  Receipt Date: 20091123
  Transmission Date: 20100525
  Serious: Yes (Other)
  Sender: FDA-Public Use
  Company Number: DE-BRISTOL-MYERS SQUIBB COMPANY-14861462

PATIENT
  Age: 49 Year
  Sex: Male
  Weight: 99 kg

DRUGS (1)
  1. ONGLYZA [Suspect]
     Indication: DIABETES MELLITUS
     Route: 048
     Dates: start: 20091103, end: 20091116

REACTIONS (3)
  - ADVERSE EVENT [None]
  - NAUSEA [None]
  - RESPIRATORY DISORDER [None]
